FAERS Safety Report 6085050-4 (Version None)
Quarter: 2009Q1

REPORT INFORMATION
  Report Type: 
  Country: None (occurrence: None)
  Receive Date: 20090220
  Receipt Date: 20090210
  Transmission Date: 20090719
  Serious: Yes (Hospitalization, Other)
  Sender: FDA-Public Use
  Company Number: US-AMGEN-QUU333254

PATIENT
  Sex: Male

DRUGS (2)
  1. ENBREL [Suspect]
     Indication: PSORIATIC ARTHROPATHY
     Route: 058
     Dates: start: 20060901
  2. ENBREL [Suspect]
     Indication: PSORIASIS

REACTIONS (4)
  - DYSPNOEA [None]
  - PLEURAL EFFUSION [None]
  - PSORIASIS [None]
  - PSORIATIC ARTHROPATHY [None]
